FAERS Safety Report 8572112-2 (Version None)
Quarter: 2012Q2

REPORT INFORMATION
  Report Type: 
  Country: None (occurrence: None)
  Receive Date: 20120423
  Receipt Date: 20100825
  Transmission Date: 20120825
  Serious: Yes (Hospitalization)
  Sender: FDA-Public Use
  Company Number: PHHY2010US54670

PATIENT
  Age: 60 Year
  Sex: Male
  Weight: 70.3 kg

DRUGS (1)
  1. EXJADE [Suspect]
     Dosage: 1250 MG, QD, ORAL
     Route: 048

REACTIONS (5)
  - PYREXIA [None]
  - URINE COLOUR ABNORMAL [None]
  - MUSCLE SPASMS [None]
  - DIARRHOEA [None]
  - RENAL FAILURE [None]
